FAERS Safety Report 19928556 (Version 1)
Quarter: 2021Q4

REPORT INFORMATION
  Report Type: Spontaneous
  Country: US (occurrence: US)
  Receive Date: 20211006
  Receipt Date: 20211006
  Transmission Date: 20220303
  Serious: No
  Sender: FDA-Public Use
  Company Number: None

PATIENT
  Age: 94 Year
  Sex: Female

DRUGS (1)
  1. BACLOFEN [Suspect]
     Active Substance: BACLOFEN

REACTIONS (5)
  - Unresponsive to stimuli [None]
  - Toxic encephalopathy [None]
  - Product use issue [None]
  - Incorrect dose administered [None]
  - Product use in unapproved indication [None]
